FAERS Safety Report 8814970 (Version 2)
Quarter: 2012Q4

REPORT INFORMATION
  Report Type: 
  Country: US (occurrence: US)
  Receive Date: 20120928
  Receipt Date: 20121011
  Transmission Date: 20130627
  Serious: Yes (Death)
  Sender: FDA-Public Use
  Company Number: US-ROCHE-1127926

PATIENT
  Sex: Female

DRUGS (2)
  1. HERCEPTIN [Suspect]
     Indication: BREAST CANCER FEMALE
     Route: 042
     Dates: start: 20050601
  2. HERCEPTIN [Suspect]
     Route: 042
     Dates: end: 20060519

REACTIONS (1)
  - Death [Fatal]
